FAERS Safety Report 17357456 (Version 2)
Quarter: 2020Q1

REPORT INFORMATION
  Report Type: Report from Study
  Country: IL (occurrence: IL)
  Receive Date: 20200131
  Receipt Date: 20200223
  Transmission Date: 20200409
  Serious: Yes (Life-Threatening, Hospitalization)
  Sender: FDA-Public Use
  Company Number: IL-EXELIXIS-XL18420026960

PATIENT
  Age: 66 Year
  Sex: Male
  Weight: 83.6 kg

DRUGS (10)
  1. ELTROXIN [Concomitant]
     Active Substance: LEVOTHYROXINE
  2. CONCOR [Concomitant]
     Active Substance: BISOPROLOL FUMARATE
  3. MAGNOX [Concomitant]
  4. BLINDED XL184 [Suspect]
     Active Substance: CABOZANTINIB
     Indication: THYROID CANCER
     Dosage: 140 OR 60 MG QD
     Route: 048
     Dates: start: 20180808
  5. ZINC OXIDE. [Concomitant]
     Active Substance: ZINC OXIDE
  6. LIPITOR [Concomitant]
     Active Substance: ATORVASTATIN CALCIUM
  7. PLAVIX [Concomitant]
     Active Substance: CLOPIDOGREL BISULFATE
  8. ADVIL [Concomitant]
     Active Substance: IBUPROFEN
  9. BLINDED XL184 [Suspect]
     Active Substance: CABOZANTINIB
     Indication: THYROID CANCER
     Dosage: 140 OR 60 MG QD
     Route: 048
     Dates: start: 20180808
  10. CALCIUM CITRATE [Concomitant]
     Active Substance: CALCIUM CITRATE

REACTIONS (1)
  - Acute coronary syndrome [Recovered/Resolved]

NARRATIVE: CASE EVENT DATE: 20200122
